FAERS Safety Report 22185345 (Version 3)
Quarter: 2024Q1

REPORT INFORMATION
  Report Type: Spontaneous
  Country: US (occurrence: US)
  Receive Date: 20230407
  Receipt Date: 20240209
  Transmission Date: 20240410
  Serious: No
  Sender: FDA-Public Use
  Company Number: US-ELI_LILLY_AND_COMPANY-US202304002066

PATIENT
  Age: 35 Year
  Sex: Female

DRUGS (36)
  1. MOUNJARO [Suspect]
     Active Substance: TIRZEPATIDE
     Indication: Insulin resistance
     Dosage: 5 MG, UNKNOWN
     Route: 065
     Dates: start: 202301
  2. MOUNJARO [Suspect]
     Active Substance: TIRZEPATIDE
     Indication: Insulin resistance
     Dosage: 5 MG, UNKNOWN
     Route: 065
     Dates: start: 202301
  3. MOUNJARO [Suspect]
     Active Substance: TIRZEPATIDE
     Indication: Insulin resistance
     Dosage: 5 MG, UNKNOWN
     Route: 065
     Dates: start: 202301
  4. MOUNJARO [Suspect]
     Active Substance: TIRZEPATIDE
     Indication: Insulin resistance
     Dosage: 5 MG, UNKNOWN
     Route: 065
     Dates: start: 202301
  5. MOUNJARO [Suspect]
     Active Substance: TIRZEPATIDE
     Indication: Insulin resistance
     Dosage: 5 MG, UNKNOWN
     Route: 065
     Dates: start: 202301
  6. MOUNJARO [Suspect]
     Active Substance: TIRZEPATIDE
     Indication: Blood cholesterol increased
     Dosage: 5 MG, UNKNOWN
     Route: 065
  7. MOUNJARO [Suspect]
     Active Substance: TIRZEPATIDE
     Indication: Blood cholesterol increased
     Dosage: 5 MG, UNKNOWN
     Route: 065
  8. MOUNJARO [Suspect]
     Active Substance: TIRZEPATIDE
     Indication: Blood cholesterol increased
     Dosage: 5 MG, UNKNOWN
     Route: 065
  9. MOUNJARO [Suspect]
     Active Substance: TIRZEPATIDE
     Indication: Blood cholesterol increased
     Dosage: 5 MG, UNKNOWN
     Route: 065
  10. MOUNJARO [Suspect]
     Active Substance: TIRZEPATIDE
     Indication: Blood cholesterol increased
     Dosage: 5 MG, UNKNOWN
     Route: 065
  11. MOUNJARO [Suspect]
     Active Substance: TIRZEPATIDE
     Indication: Lipoedema
  12. MOUNJARO [Suspect]
     Active Substance: TIRZEPATIDE
     Indication: Lipoedema
  13. MOUNJARO [Suspect]
     Active Substance: TIRZEPATIDE
     Indication: Lipoedema
  14. MOUNJARO [Suspect]
     Active Substance: TIRZEPATIDE
     Indication: Lipoedema
  15. MOUNJARO [Suspect]
     Active Substance: TIRZEPATIDE
     Indication: Lipoedema
  16. MOUNJARO [Suspect]
     Active Substance: TIRZEPATIDE
     Indication: Angiopathy
  17. MOUNJARO [Suspect]
     Active Substance: TIRZEPATIDE
     Indication: Angiopathy
  18. MOUNJARO [Suspect]
     Active Substance: TIRZEPATIDE
     Indication: Angiopathy
  19. MOUNJARO [Suspect]
     Active Substance: TIRZEPATIDE
     Indication: Angiopathy
  20. MOUNJARO [Suspect]
     Active Substance: TIRZEPATIDE
     Indication: Angiopathy
  21. MOUNJARO [Suspect]
     Active Substance: TIRZEPATIDE
     Indication: Insulin resistance
     Dosage: 7.5 MG, UNKNOWN
     Route: 065
  22. MOUNJARO [Suspect]
     Active Substance: TIRZEPATIDE
     Indication: Insulin resistance
     Dosage: 7.5 MG, UNKNOWN
     Route: 065
  23. MOUNJARO [Suspect]
     Active Substance: TIRZEPATIDE
     Indication: Insulin resistance
     Dosage: 7.5 MG, UNKNOWN
     Route: 065
  24. MOUNJARO [Suspect]
     Active Substance: TIRZEPATIDE
     Indication: Insulin resistance
     Dosage: 7.5 MG, UNKNOWN
     Route: 065
  25. MOUNJARO [Suspect]
     Active Substance: TIRZEPATIDE
     Indication: Blood cholesterol increased
  26. MOUNJARO [Suspect]
     Active Substance: TIRZEPATIDE
     Indication: Blood cholesterol increased
  27. MOUNJARO [Suspect]
     Active Substance: TIRZEPATIDE
     Indication: Blood cholesterol increased
  28. MOUNJARO [Suspect]
     Active Substance: TIRZEPATIDE
     Indication: Blood cholesterol increased
  29. MOUNJARO [Suspect]
     Active Substance: TIRZEPATIDE
     Indication: Lipoedema
  30. MOUNJARO [Suspect]
     Active Substance: TIRZEPATIDE
     Indication: Lipoedema
  31. MOUNJARO [Suspect]
     Active Substance: TIRZEPATIDE
     Indication: Lipoedema
  32. MOUNJARO [Suspect]
     Active Substance: TIRZEPATIDE
     Indication: Lipoedema
  33. MOUNJARO [Suspect]
     Active Substance: TIRZEPATIDE
     Indication: Angiopathy
  34. MOUNJARO [Suspect]
     Active Substance: TIRZEPATIDE
     Indication: Angiopathy
  35. MOUNJARO [Suspect]
     Active Substance: TIRZEPATIDE
     Indication: Angiopathy
  36. MOUNJARO [Suspect]
     Active Substance: TIRZEPATIDE
     Indication: Angiopathy

REACTIONS (7)
  - Allergy to metals [Unknown]
  - Injection site pain [Unknown]
  - Injection site haemorrhage [Unknown]
  - Injection site pruritus [Unknown]
  - Injection site bruising [Unknown]
  - Off label use [Unknown]
  - Incorrect dose administered [Unknown]

NARRATIVE: CASE EVENT DATE: 20230101
